FAERS Safety Report 16959928 (Version 1)
Quarter: 2019Q4

REPORT INFORMATION
  Report Type: Spontaneous
  Country: GB (occurrence: GB)
  Receive Date: 20191025
  Receipt Date: 20191025
  Transmission Date: 20200122
  Serious: Yes (Other)
  Sender: FDA-Public Use
  Company Number: GB-TEVA-2019-GB-1127078

PATIENT
  Age: 38 Year
  Sex: Female
  Weight: 83 kg

DRUGS (5)
  1. MOMETASONE [Concomitant]
     Active Substance: MOMETASONE
     Route: 045
  2. NAPROXEN. [Suspect]
     Active Substance: NAPROXEN
     Indication: BACK PAIN
     Dosage: 1000 MILLIGRAM, WITH FOOD
     Route: 048
     Dates: start: 20190809, end: 20190815
  3. DERMOL 500 LOTION [Concomitant]
  4. ROACCUTANE [Concomitant]
     Active Substance: ISOTRETINOIN
     Indication: KERATOSIS FOLLICULAR
     Dosage: 20 MILLIGRAM
  5. CITALOPRAM [Concomitant]
     Active Substance: CITALOPRAM HYDROBROMIDE
     Dosage: 10 MILLIGRAM

REACTIONS (4)
  - Swollen tongue [Recovering/Resolving]
  - Rash [Recovering/Resolving]
  - Paraesthesia [Recovering/Resolving]
  - Dyspnoea [Recovering/Resolving]

NARRATIVE: CASE EVENT DATE: 20190815
